FAERS Safety Report 9052927 (Version 2)
Quarter: 2013Q1

REPORT INFORMATION
  Report Type: Spontaneous
  Country: US (occurrence: US)
  Receive Date: 20130207
  Receipt Date: 20130228
  Transmission Date: 20140127
  Serious: Yes (Hospitalization)
  Sender: FDA-Public Use
  Company Number: US-GILEAD-2013-0069330

PATIENT
  Age: 59 None
  Sex: Female

DRUGS (4)
  1. LETAIRIS [Suspect]
     Indication: SCLERODERMA
     Dosage: 10 MG, QD
     Route: 048
     Dates: start: 20100630
  2. REMODULIN [Concomitant]
  3. TYVASO [Concomitant]
  4. REVATIO [Concomitant]

REACTIONS (3)
  - Dehydration [Unknown]
  - Diarrhoea [Unknown]
  - Gastroenteritis norovirus [Unknown]
